FAERS Safety Report 12242125 (Version 1)
Quarter: 2016Q2

REPORT INFORMATION
  Report Type: Spontaneous
  Country: US (occurrence: US)
  Receive Date: 20160406
  Receipt Date: 20160406
  Transmission Date: 20160815
  Serious: No
  Sender: FDA-Public Use
  Company Number: US-009507513-1603USA010486

PATIENT
  Sex: Male

DRUGS (3)
  1. METFORMIN [Suspect]
     Active Substance: METFORMIN HYDROCHLORIDE
     Dosage: UNK
  2. JANUVIA [Suspect]
     Active Substance: SITAGLIPTIN PHOSPHATE
     Dosage: UNK
     Route: 048
  3. NOVOLOG [Suspect]
     Active Substance: INSULIN ASPART
     Dosage: UNK

REACTIONS (4)
  - Memory impairment [Unknown]
  - Blood glucose increased [Unknown]
  - Somnolence [Unknown]
  - Drug dose omission [Unknown]
